FAERS Safety Report 9964375 (Version 1)
Quarter: 2014Q1

REPORT INFORMATION
  Report Type: Spontaneous
  Country: JP (occurrence: JP)
  Receive Date: 20140305
  Receipt Date: 20140305
  Transmission Date: 20141002
  Serious: Yes (Other)
  Sender: FDA-Public Use
  Company Number: JP-GLAXOSMITHKLINE-B0973077A

PATIENT
  Sex: Female

DRUGS (2)
  1. TYKERB [Suspect]
     Indication: BREAST CANCER
     Dosage: 1250MG PER DAY
     Route: 048
     Dates: start: 201401
  2. XELODA [Suspect]
     Indication: BREAST CANCER
     Dosage: 300MG PER DAY
     Route: 048
     Dates: start: 201401

REACTIONS (2)
  - Intestinal perforation [Recovered/Resolved]
  - Melaena [Recovered/Resolved]
